FAERS Safety Report 17071753 (Version 1)
Quarter: 2019Q4

REPORT INFORMATION
  Report Type: Spontaneous
  Country: TR (occurrence: TR)
  Receive Date: 20191125
  Receipt Date: 20191125
  Transmission Date: 20200122
  Serious: Yes (Hospitalization)
  Sender: FDA-Public Use
  Company Number: TR-ALEMBIC PHARMACUETICALS LIMITED-2019SCAL000875

PATIENT

DRUGS (3)
  1. RABEPRAZOLE [Concomitant]
     Active Substance: RABEPRAZOLE
     Indication: PRODUCT USED FOR UNKNOWN INDICATION
     Dosage: 20 MILLIGRAM, OD
  2. TERIFLUNOMIDE. [Suspect]
     Active Substance: TERIFLUNOMIDE
     Indication: MULTIPLE SCLEROSIS
     Dosage: 14 MILLIGRAM, OD
     Route: 065
  3. LEVOTHYROXINE. [Concomitant]
     Active Substance: LEVOTHYROXINE
     Indication: PRODUCT USED FOR UNKNOWN INDICATION
     Dosage: 50 MICROGRAM, OD

REACTIONS (10)
  - Onychomadesis [Recovered/Resolved]
  - Dermatitis psoriasiform [Recovered/Resolved]
  - Hyperkeratosis [Recovered/Resolved]
  - Onycholysis [Recovered/Resolved]
  - Rash pustular [Recovered/Resolved]
  - Skin exfoliation [Recovered/Resolved]
  - Nail pitting [Recovered/Resolved]
  - Erythema [Recovered/Resolved]
  - Rash erythematous [Recovered/Resolved]
  - Pustular psoriasis [Recovered/Resolved]
